FAERS Safety Report 19034635 (Version 1)
Quarter: 2021Q1

REPORT INFORMATION
  Report Type: Spontaneous
  Country: US (occurrence: US)
  Receive Date: 20210320
  Receipt Date: 20210320
  Transmission Date: 20210420
  Serious: No
  Sender: FDA-Public Use
  Company Number: US-TAKEDA-2021TUS015934

PATIENT
  Sex: Female
  Weight: 50 kg

DRUGS (8)
  1. CUVITRU [Suspect]
     Active Substance: HUMAN IMMUNOGLOBULIN G
     Indication: HYPOGAMMAGLOBULINAEMIA
     Dosage: 5 GRAM EVERY 2 WEEKS
     Route: 057
     Dates: start: 20210303
  2. ALBUTEROL [SALBUTAMOL] [Concomitant]
     Active Substance: ALBUTEROL
  3. FLONASE [MOMETASONE FUROATE] [Concomitant]
     Active Substance: MOMETASONE FUROATE
  4. ZYRTEC?D [Concomitant]
     Active Substance: CETIRIZINE HYDROCHLORIDE\PSEUDOEPHEDRINE HYDROCHLORIDE
  5. ACETAMINOPHEN. [Concomitant]
     Active Substance: ACETAMINOPHEN
  6. EPINEPHRINE. [Concomitant]
     Active Substance: EPINEPHRINE
  7. MULTIVITAMINUM [Concomitant]
     Active Substance: VITAMINS
  8. DIPHENHYDRAMINE. [Concomitant]
     Active Substance: DIPHENHYDRAMINE

REACTIONS (1)
  - Infusion site extravasation [Unknown]
